FAERS Safety Report 11111921 (Version 1)
Quarter: 2015Q2

REPORT INFORMATION
  Report Type: Report from Study
  Country: CO (occurrence: CO)
  Receive Date: 20150514
  Receipt Date: 20150514
  Transmission Date: 20150821
  Serious: Yes (Death, Hospitalization, Other)
  Sender: FDA-Public Use
  Company Number: CO-ALXN-A201501683AA

PATIENT

DRUGS (1)
  1. SOLIRIS [Suspect]
     Active Substance: ECULIZUMAB
     Indication: HAEMOLYTIC URAEMIC SYNDROME
     Dosage: 300 MG, Q2W
     Route: 042
     Dates: start: 20150401, end: 20150428

REACTIONS (4)
  - Death [Fatal]
  - Fungal sepsis [Unknown]
  - Infection [Unknown]
  - Pancytopenia [Unknown]

NARRATIVE: CASE EVENT DATE: 20150323
